FAERS Safety Report 5310965-1 (Version None)
Quarter: 2007Q2

REPORT INFORMATION
  Report Type: 
  Country: None (occurrence: None)
  Receive Date: 20070426
  Receipt Date: 20070426
  Transmission Date: 20071010
  Serious: Yes (Hospitalization)
  Sender: FDA-Public Use
  Company Number: None

PATIENT
  Age: 5 Year
  Sex: Male
  Weight: 22.7 kg

DRUGS (1)
  1. ZITHROMAX [Suspect]
     Indication: BRONCHIOLITIS
     Dosage: ONCE A DAY, ORALLY
     Route: 048
     Dates: start: 20040309, end: 20070313

REACTIONS (1)
  - PANCREATITIS [None]
